FAERS Safety Report 16968686 (Version 2)
Quarter: 2019Q4

REPORT INFORMATION
  Report Type: Spontaneous
  Country: NZ (occurrence: NZ)
  Receive Date: 20191029
  Receipt Date: 20191202
  Transmission Date: 20200122
  Serious: Yes (Other)
  Sender: FDA-Public Use
  Company Number: NZ-BAXTER-2019BAX021286

PATIENT
  Age: 65 Year
  Sex: Female

DRUGS (3)
  1. SODIUM CHLORIDE (VIAFLO) [Suspect]
     Active Substance: SODIUM CHLORIDE
     Indication: MEDICATION DILUTION
     Dosage: ADMINISTERED 5 ML NACL FROM THE COMPOUNDED PRODUCT (PACLITAXEL 340MG 500 MLS NACL)
     Route: 042
     Dates: start: 20191017, end: 20191017
  2. PACLITAXEL. [Suspect]
     Active Substance: PACLITAXEL
     Indication: OVARIAN CANCER STAGE IV
  3. PACLITAXEL. [Suspect]
     Active Substance: PACLITAXEL
     Indication: OVARIAN CANCER METASTATIC
     Dosage: ADMINISTERED 8.62 MG OF PACLITAXEL FROM THE COMPOUNDED PRODUCT (PACLITAXEL 340MG 500 MLS NACL)
     Route: 042
     Dates: start: 20191017, end: 20191017

REACTIONS (5)
  - Malaise [Unknown]
  - Oxygen saturation decreased [Recovered/Resolved]
  - Back pain [Recovered/Resolved]
  - Dyspnoea [Recovered/Resolved]
  - Chest discomfort [Recovered/Resolved]

NARRATIVE: CASE EVENT DATE: 20191017
